FAERS Safety Report 4634249-X (Version None)
Quarter: 2005Q2

REPORT INFORMATION
  Report Type: 
  Country: None (occurrence: None)
  Receive Date: 20050413
  Receipt Date: 20041119
  Transmission Date: 20051028
  Serious: No
  Sender: FDA-Public Use
  Company Number: PHBS2004JP15804

PATIENT
  Age: 52 Year
  Sex: Female
  Weight: 55 kg

DRUGS (2)
  1. DERMOVATE [Concomitant]
     Route: 061
  2. LAMISIL [Suspect]
     Indication: NAIL TINEA
     Dosage: 125 MG/D
     Route: 048
     Dates: start: 20041108, end: 20041114

REACTIONS (8)
  - DRUG ERUPTION [None]
  - DYSGEUSIA [None]
  - ERYTHEMA [None]
  - EXANTHEM [None]
  - HYPOAESTHESIA ORAL [None]
  - MALAISE [None]
  - PRURITUS [None]
  - SKIN OEDEMA [None]
